FAERS Safety Report 8314265-7 (Version None)
Quarter: 2012Q2

REPORT INFORMATION
  Report Type: 
  Country: None (occurrence: None)
  Receive Date: 20120426
  Receipt Date: 20120411
  Transmission Date: 20120825
  Serious: Yes (Other)
  Sender: FDA-Public Use
  Company Number: US-ENDO PHARMACEUTICALS INC.-OPER20120512

PATIENT
  Sex: Female

DRUGS (7)
  1. MORPHINE SULFATE [Suspect]
     Indication: PRODUCT USED FOR UNKNOWN INDICATION
     Dosage: UNK
  2. ROXICODONE [Concomitant]
     Indication: BREAKTHROUGH PAIN
     Dosage: 15 MG
     Route: 048
  3. METHYLPHENIDATE [Concomitant]
     Indication: NARCOLEPSY
     Dosage: 10 MG
     Route: 048
  4. OPANA ER [Suspect]
     Indication: PAIN
     Route: 048
  5. HERBAL SUPPLEMENT CONTAINING POPPY SEEDS [Concomitant]
     Indication: INSOMNIA
     Dosage: UNK
     Route: 048
  6. SOMA [Concomitant]
     Indication: FIBROMYALGIA
     Route: 048
  7. TOPAMAX [Concomitant]
     Indication: MIGRAINE
     Route: 048

REACTIONS (3)
  - INTENTIONAL DRUG MISUSE [None]
  - DRUG ABUSE [None]
  - DRUG SCREEN POSITIVE [None]
